FAERS Safety Report 14256036 (Version 2)
Quarter: 2017Q4

REPORT INFORMATION
  Report Type: Report from Study
  Country: US (occurrence: US)
  Receive Date: 20171206
  Receipt Date: 20171214
  Transmission Date: 20180321
  Serious: No
  Sender: FDA-Public Use
  Company Number: US-OTSUKA-2017_024966

PATIENT
  Sex: Female

DRUGS (1)
  1. DEXTROMETHORPHAN/QUINIDINE [Suspect]
     Active Substance: DEXTROMETHORPHAN HYDROBROMIDE\QUINIDINE SULFATE
     Indication: AFFECT LABILITY
     Dosage: 1 DF, (EVERY OTHER DAY OR ONE A DAY)
     Route: 065

REACTIONS (5)
  - Emotional disorder [Unknown]
  - Off label use [Unknown]
  - Crying [Unknown]
  - Condition aggravated [Unknown]
  - Irritability [Unknown]
